FAERS Safety Report 5674590-5 (Version None)
Quarter: 2008Q1

REPORT INFORMATION
  Report Type: 
  Country: None (occurrence: None)
  Receive Date: 20080320
  Receipt Date: 20080313
  Transmission Date: 20080703
  Serious: Yes (Hospitalization)
  Sender: FDA-Public Use
  Company Number: US-JNJFOC-20080303932

PATIENT
  Sex: Male
  Weight: 59.88 kg

DRUGS (6)
  1. DURAGESIC-100 [Suspect]
     Route: 062
  2. DURAGESIC-100 [Suspect]
     Indication: NECK PAIN
     Dosage: 50 UG/HR AND 100 UG/HR PATCHES
     Route: 062
  3. NEURONTIN [Concomitant]
     Indication: PAIN
     Route: 048
  4. LUNESTA [Concomitant]
     Route: 048
  5. CYMBALTA [Concomitant]
     Indication: ANXIETY
     Route: 048
  6. XANAX [Concomitant]
     Indication: PANIC DISORDER
     Route: 048

REACTIONS (3)
  - CROHN'S DISEASE [None]
  - ROAD TRAFFIC ACCIDENT [None]
  - WRONG TECHNIQUE IN DRUG USAGE PROCESS [None]
